FAERS Safety Report 20447348 (Version 1)
Quarter: 2022Q1

REPORT INFORMATION
  Report Type: Spontaneous
  Country: US (occurrence: US)
  Receive Date: 20220209
  Receipt Date: 20220209
  Transmission Date: 20220423
  Serious: Yes (Other)
  Sender: FDA-Public Use
  Company Number: US-ALKEM LABORATORIES LIMITED-US-ALKEM-2022-00521

PATIENT
  Age: 34 Year
  Sex: Male

DRUGS (5)
  1. DABIGATRAN ETEXILATE MESYLATE [Suspect]
     Active Substance: DABIGATRAN ETEXILATE MESYLATE
     Indication: Product used for unknown indication
     Dosage: UNK (6 ? [2 ? 150 MG] (1800 MG)
     Route: 065
  2. DABIGATRAN ETEXILATE MESYLATE [Suspect]
     Active Substance: DABIGATRAN ETEXILATE MESYLATE
     Dosage: UNK
  3. METOPROLOL SUCCINATE [Suspect]
     Active Substance: METOPROLOL SUCCINATE
     Indication: Product used for unknown indication
     Dosage: 600 MILLIGRAM
     Route: 065
  4. COLCHICINE [Suspect]
     Active Substance: COLCHICINE
     Indication: Product used for unknown indication
     Dosage: 3.6 MILLIGRAM
     Route: 065
  5. DILTIAZEM [Suspect]
     Active Substance: DILTIAZEM
     Indication: Product used for unknown indication
     Dosage: 240 MILLIGRAM
     Route: 065

REACTIONS (5)
  - Haemorrhage [Unknown]
  - Haematemesis [Unknown]
  - Suicide attempt [Unknown]
  - International normalised ratio increased [Unknown]
  - Activated partial thromboplastin time prolonged [Unknown]
